FAERS Safety Report 12318856 (Version 1)
Quarter: 2016Q2

REPORT INFORMATION
  Report Type: Spontaneous
  Country: IT (occurrence: IT)
  Receive Date: 20160429
  Receipt Date: 20160429
  Transmission Date: 20160815
  Serious: Yes (Hospitalization, Other)
  Sender: FDA-Public Use
  Company Number: IT-GILEAD-2016-0210588

PATIENT
  Age: 63 Year
  Sex: Female
  Weight: 88 kg

DRUGS (7)
  1. LUVION                             /00252501/ [Concomitant]
     Active Substance: CANRENONE
     Dosage: 100 MG, QD
     Route: 065
     Dates: start: 20151101
  2. DAKLINZA [Suspect]
     Active Substance: DACLATASVIR
     Indication: CHRONIC HEPATITIS C
     Dosage: 60 MG, QD
     Route: 048
     Dates: start: 20160202, end: 20160331
  3. SOVALDI [Suspect]
     Active Substance: SOFOSBUVIR
     Indication: CHRONIC HEPATITIS C
     Dosage: 400 MG, QD
     Route: 048
     Dates: start: 20160202, end: 20160331
  4. PANTOPRAZOLO [Concomitant]
     Active Substance: PANTOPRAZOLE SODIUM
     Dosage: 20 MG, QD
     Dates: start: 20151101
  5. LATTULOSIO [Concomitant]
  6. METADONE CLORIDRATO AFOM [Concomitant]
     Active Substance: METHADONE HYDROCHLORIDE
     Dosage: 20 MG, UNK
  7. HUMATIN [Concomitant]
     Active Substance: PAROMOMYCIN SULFATE
     Dosage: 3 DF, UNK
     Route: 048

REACTIONS (1)
  - Femur fracture [Recovering/Resolving]

NARRATIVE: CASE EVENT DATE: 20160221
